FAERS Safety Report 21430919 (Version 1)
Quarter: 2022Q4

REPORT INFORMATION
  Report Type: Spontaneous
  Country: US (occurrence: US)
  Receive Date: 20221009
  Receipt Date: 20221009
  Transmission Date: 20230112
  Serious: Yes (Other)
  Sender: FDA-Public Use
  Company Number: US-PURDUE-USA-2020-0263994

PATIENT
  Sex: Female

DRUGS (5)
  1. DILAUDID [Suspect]
     Active Substance: HYDROMORPHONE HYDROCHLORIDE
     Indication: Product used for unknown indication
     Dosage: UNKNOWN
     Route: 048
  2. OXYCODONE HYDROCHLORIDE [Suspect]
     Active Substance: OXYCODONE HYDROCHLORIDE
     Indication: Product used for unknown indication
     Dosage: UNKNOWN
     Route: 048
  3. HYDROCODONE BITARTRATE AND ACETAMINOPHEN [Suspect]
     Active Substance: ACETAMINOPHEN\HYDROCODONE BITARTRATE
     Indication: Product used for unknown indication
     Dosage: UNKNOWN
     Route: 048
  4. OXYCODONE HYDROCHLORIDE [Suspect]
     Active Substance: OXYCODONE HYDROCHLORIDE
     Indication: Product used for unknown indication
     Dosage: UNKNOWN
     Route: 048
  5. HYDROMORPHONE [Suspect]
     Active Substance: HYDROMORPHONE
     Indication: Product used for unknown indication
     Dosage: UNKNOWN
     Route: 048

REACTIONS (3)
  - Drug dependence [Unknown]
  - Pain [Unknown]
  - Emotional distress [Unknown]
